FAERS Safety Report 25268502 (Version 1)
Quarter: 2025Q2

REPORT INFORMATION
  Report Type: Report from Study
  Country: US (occurrence: US)
  Receive Date: 20250505
  Receipt Date: 20250505
  Transmission Date: 20250716
  Serious: Yes (Other)
  Sender: UCB
  Company Number: US-UCBSA-2025025631

PATIENT
  Sex: Male

DRUGS (1)
  1. MIDAZOLAM [Suspect]
     Active Substance: MIDAZOLAM
     Indication: Seizure
     Dosage: 5 MILLIGRAM, 1 EACH (5 MG TOTAL) INTO ONE NOSTRIL 2 (TWO) TIMES A DAY AS NEEDED
     Route: 045

REACTIONS (2)
  - Seizure [Unknown]
  - Product dose omission issue [Unknown]
